FAERS Safety Report 5528939-4 (Version None)
Quarter: 2007Q4

REPORT INFORMATION
  Report Type: 
  Country: None (occurrence: None)
  Receive Date: 20071129
  Receipt Date: 20071120
  Transmission Date: 20080405
  Serious: Yes (Hospitalization)
  Sender: FDA-Public Use
  Company Number: US-KINGPHARMUSA00001-K200701505

PATIENT

DRUGS (1)
  1. LORABID [Suspect]
     Indication: ACUTE TONSILLITIS
     Dosage: 200 MG, BID
     Route: 048
     Dates: start: 20050331, end: 20050404

REACTIONS (5)
  - ABASIA [None]
  - DERMATITIS ALLERGIC [None]
  - GAIT DISTURBANCE [None]
  - OEDEMA PERIPHERAL [None]
  - PAIN IN EXTREMITY [None]
